FAERS Safety Report 23722794 (Version 4)
Quarter: 2024Q4

REPORT INFORMATION
  Report Type: Spontaneous
  Country: CA (occurrence: CA)
  Receive Date: 20240409
  Receipt Date: 20241014
  Transmission Date: 20250115
  Serious: Yes (Other)
  Sender: PFIZER
  Company Number: CA-PFIZER INC-202300355270

PATIENT
  Age: 66 Year
  Sex: Female
  Weight: 93.3 kg

DRUGS (15)
  1. RUXIENCE [Suspect]
     Active Substance: RITUXIMAB-PVVR
     Indication: Granulomatosis with polyangiitis
     Dosage: 800 MG, WEEKLY (4 DOSES)
     Route: 042
     Dates: start: 20231019
  2. RUXIENCE [Suspect]
     Active Substance: RITUXIMAB-PVVR
     Dosage: 800 MG, WEEKLY (4 DOSES)
     Route: 042
     Dates: start: 20231025
  3. RUXIENCE [Suspect]
     Active Substance: RITUXIMAB-PVVR
     Dosage: 800 MG, WEEKLY (4 DOSES)
     Route: 042
     Dates: start: 20231025
  4. RUXIENCE [Suspect]
     Active Substance: RITUXIMAB-PVVR
     Dosage: 800 MG, WEEKLY (AFTER 1 WEEKS)
     Route: 042
     Dates: start: 20231101
  5. RUXIENCE [Suspect]
     Active Substance: RITUXIMAB-PVVR
     Dosage: 800 MG, WEEKLY (4 DOSES)
     Route: 042
     Dates: start: 20231108
  6. RUXIENCE [Suspect]
     Active Substance: RITUXIMAB-PVVR
     Dosage: 800 MG, WEEKLY (4 DOSES)
     Route: 042
     Dates: start: 20231108
  7. RUXIENCE [Suspect]
     Active Substance: RITUXIMAB-PVVR
     Dosage: 500 MG, EVERY 6 MONTHS (350 MG, 21 WEEKS AFTER LAST TREATMENT)
     Route: 042
     Dates: start: 20240403
  8. RUXIENCE [Suspect]
     Active Substance: RITUXIMAB-PVVR
     Dosage: 500 MG, DAY 1 RETREATMENT (500 MG, EVERY 6 MONTHS)
     Route: 042
     Dates: start: 20241008
  9. CALCIUM [Concomitant]
     Active Substance: CALCIUM
     Dosage: 500 MG
  10. LEVOTHYROXINE [Concomitant]
     Active Substance: LEVOTHYROXINE
     Dosage: 100 UG
  11. LASIX [Concomitant]
     Active Substance: FUROSEMIDE
     Dosage: 1 DF
  12. PANTOPRAZOLE SODIUM [Concomitant]
     Active Substance: PANTOPRAZOLE SODIUM
     Dosage: 40 MG
  13. PREDNISONE [Concomitant]
     Active Substance: PREDNISONE
     Dosage: 45 MG
  14. SULFADIAZINE\TRIMETHOPRIM [Concomitant]
     Active Substance: SULFADIAZINE\TRIMETHOPRIM
     Dosage: 80 MG
  15. CHOLECALCIFEROL [Concomitant]
     Active Substance: CHOLECALCIFEROL
     Dosage: 1 DF

REACTIONS (14)
  - Throat irritation [Recovered/Resolved]
  - Throat tightness [Recovered/Resolved]
  - Lacrimation increased [Recovered/Resolved]
  - Chest discomfort [Unknown]
  - Platelet count abnormal [Unknown]
  - Bedridden [Unknown]
  - Cough [Unknown]
  - Hypertension [Recovering/Resolving]
  - Fatigue [Not Recovered/Not Resolved]
  - Nervousness [Not Recovered/Not Resolved]
  - Malaise [Unknown]
  - Infusion related reaction [Unknown]
  - Eye pruritus [Recovered/Resolved]
  - Off label use [Unknown]

NARRATIVE: CASE EVENT DATE: 20230101
